FAERS Safety Report 11394455 (Version 2)
Quarter: 2015Q3

REPORT INFORMATION
  Report Type: Report from Study
  Country: US (occurrence: US)
  Receive Date: 20150819
  Receipt Date: 20150903
  Transmission Date: 20151125
  Serious: Yes (Hospitalization)
  Sender: FDA-Public Use
  Company Number: US-BIOGENIDEC-2015BI114302

PATIENT
  Age: 75 Year
  Sex: Male

DRUGS (11)
  1. TECFIDERA [Suspect]
     Active Substance: DIMETHYL FUMARATE
     Indication: MULTIPLE SCLEROSIS
     Route: 048
     Dates: start: 20150403
  2. ASPIR-81 [Concomitant]
     Active Substance: ASPIRIN
  3. LEVOFLOXACIN. [Concomitant]
     Active Substance: LEVOFLOXACIN
  4. FINASTERIDE. [Concomitant]
     Active Substance: FINASTERIDE
  5. MELOXICAM. [Concomitant]
     Active Substance: MELOXICAM
  6. BACLOFEN. [Concomitant]
     Active Substance: BACLOFEN
  7. ISOSORBIDE DINITRATE. [Concomitant]
     Active Substance: ISOSORBIDE DINITRATE
  8. ATENOLOL. [Concomitant]
     Active Substance: ATENOLOL
  9. OMEPRAZOLE. [Concomitant]
     Active Substance: OMEPRAZOLE
  10. NUVIGIL [Concomitant]
     Active Substance: ARMODAFINIL
  11. CLOPIDOGREL BISULFATE. [Concomitant]
     Active Substance: CLOPIDOGREL BISULFATE

REACTIONS (3)
  - Dehydration [Unknown]
  - Urinary tract infection [Unknown]
  - Renal failure [Unknown]

NARRATIVE: CASE EVENT DATE: 20150809
